FAERS Safety Report 8546301-7 (Version None)
Quarter: 2012Q3

REPORT INFORMATION
  Report Type: 
  Country: None (occurrence: None)
  Receive Date: 20120727
  Receipt Date: 20111213
  Transmission Date: 20120928
  Serious: No
  Sender: FDA-Public Use
  Company Number: US-ASTRAZENECA-2011SE75480

PATIENT
  Age: 36 Year
  Sex: Male
  Weight: 108.9 kg

DRUGS (5)
  1. SEROQUEL [Suspect]
     Route: 048
  2. XANAX [Concomitant]
  3. SEROQUEL [Suspect]
     Indication: SCHIZOPHRENIA
     Route: 048
  4. AMBIEN [Concomitant]
  5. TRAZODONE HYDROCHLORIDE [Concomitant]

REACTIONS (11)
  - DYSPNOEA [None]
  - PANIC ATTACK [None]
  - INSOMNIA [None]
  - SOMNOLENCE [None]
  - MUSCLE SPASMS [None]
  - HEART RATE INCREASED [None]
  - DEPENDENCE [None]
  - TREMOR [None]
  - HEPATIC ENZYME INCREASED [None]
  - WEIGHT INCREASED [None]
  - GLUCOSE TOLERANCE IMPAIRED [None]
